FAERS Safety Report 5358723-6 (Version None)
Quarter: 2007Q2

REPORT INFORMATION
  Report Type: 
  Country: None (occurrence: None)
  Receive Date: 20070615
  Receipt Date: 20070607
  Transmission Date: 20071010
  Serious: Yes (Hospitalization)
  Sender: FDA-Public Use
  Company Number: FR-ROCHE-501487

PATIENT
  Age: 47 Year
  Sex: Male

DRUGS (5)
  1. KYTRIL [Suspect]
     Indication: DRUG USE FOR UNKNOWN INDICATION
     Route: 042
     Dates: start: 20070419, end: 20070419
  2. SOLU-MEDROL [Suspect]
     Indication: DRUG USE FOR UNKNOWN INDICATION
     Dosage: FORM REPORTED AS LYOPHILISED, STRENGTH AS 40MG/2ML.
     Route: 042
     Dates: start: 20070419, end: 20070419
  3. ERBITUX [Suspect]
     Indication: DRUG USE FOR UNKNOWN INDICATION
     Dosage: FIFTH CYCLE.
     Route: 042
     Dates: start: 20070419, end: 20070419
  4. ERBITUX [Suspect]
     Dosage: SIXTH CYCLE.
     Route: 042
     Dates: start: 20070426
  5. POLARAMINE [Suspect]
     Indication: DRUG USE FOR UNKNOWN INDICATION
     Route: 042
     Dates: start: 20070419, end: 20070419

REACTIONS (2)
  - TACHYCARDIA [None]
  - TREMOR [None]
